FAERS Safety Report 7070031 (Version 7)
Quarter: 2014Q1

REPORT INFORMATION
  Report Type: Report from Study
  Country: KR (occurrence: KR)
  Receive Date: 20090803
  Receipt Date: 20140220
  Transmission Date: 20141002
  Serious: Yes (Hospitalization)
  Sender: FDA-Public Use
  Company Number: PHHO2009KR05162

PATIENT
  Sex: 0

DRUGS (6)
  1. EVEROLIMUS [Suspect]
     Indication: METASTATIC RENAL CELL CARCINOMA
     Dosage: 10 MG, QD
     Route: 048
     Dates: start: 20090211, end: 20090419
  2. EVEROLIMUS [Suspect]
     Dosage: NO TREATMENT
     Dates: start: 20090420, end: 20090426
  3. EVEROLIMUS [Suspect]
     Dosage: 10 MG, QD
     Route: 048
     Dates: start: 20090427
  4. NORVASC [Concomitant]
  5. CODEINE [Concomitant]
  6. ASPIRIN [Concomitant]

REACTIONS (19)
  - Pneumonitis [Recovered/Resolved with Sequelae]
  - Dyspnoea [Unknown]
  - Cough [Unknown]
  - Malaise [Unknown]
  - Pain in extremity [Unknown]
  - Myalgia [Recovering/Resolving]
  - Pyrexia [Recovering/Resolving]
  - Malignant neoplasm progression [Recovered/Resolved with Sequelae]
  - Pneumonia [Recovered/Resolved]
  - Fatigue [Recovered/Resolved]
  - Productive cough [Recovered/Resolved]
  - Nasopharyngitis [Recovered/Resolved]
  - Back pain [Recovered/Resolved]
  - Lung consolidation [Recovered/Resolved]
  - Pulmonary tuberculosis [Recovering/Resolving]
  - Atelectasis [Recovering/Resolving]
  - Gamma-glutamyltransferase increased [Recovering/Resolving]
  - Aspartate aminotransferase increased [Recovering/Resolving]
  - Blood lactate dehydrogenase increased [Recovering/Resolving]
